FAERS Safety Report 14633117 (Version 1)
Quarter: 2018Q1

REPORT INFORMATION
  Report Type: Spontaneous
  Country: FI (occurrence: FI)
  Receive Date: 20180313
  Receipt Date: 20180313
  Transmission Date: 20180509
  Serious: Yes (Hospitalization)
  Sender: FDA-Public Use
  Company Number: FI-B. BRAUN MEDICAL INC.-2043658

PATIENT
  Age: 73 Year
  Sex: Male
  Weight: 156 kg

DRUGS (12)
  1. SIMVASTATIN. [Concomitant]
     Active Substance: SIMVASTATIN
     Route: 065
  2. OFEV [Suspect]
     Active Substance: NINTEDANIB
     Route: 065
     Dates: start: 20170222, end: 20170630
  3. CLINDAMYCIN. [Suspect]
     Active Substance: CLINDAMYCIN
     Route: 065
  4. CEFUROXIME FOR INJECTION USP AND DEXTROSE INJECTION USP [Suspect]
     Active Substance: CEFUROXIME SODIUM
     Indication: POSTOPERATIVE WOUND INFECTION
     Route: 065
  5. RAMIPRIL. [Concomitant]
     Active Substance: RAMIPRIL
     Route: 065
  6. DINIT [Concomitant]
     Active Substance: ISOSORBIDE DINITRATE
     Route: 065
  7. CARDACE [Concomitant]
     Active Substance: RAMIPRIL
     Route: 065
  8. OFEV [Suspect]
     Active Substance: NINTEDANIB
     Dates: start: 20170801, end: 20170824
  9. PRIMASPAN [Concomitant]
     Active Substance: ASPIRIN
  10. OFEV [Suspect]
     Active Substance: NINTEDANIB
     Dates: start: 20170701, end: 20170801
  11. LIPCUT [Concomitant]
     Active Substance: SIMVASTATIN
     Route: 065
  12. LOSARTAN AND HYDROCHLOROTHIAZIDE [Concomitant]
     Active Substance: HYDROCHLOROTHIAZIDE\LOSARTAN POTASSIUM
     Route: 065

REACTIONS (3)
  - Myocardial infarction [Recovered/Resolved]
  - Diarrhoea [Recovered/Resolved]
  - Procedural complication [Recovered/Resolved]
